FAERS Safety Report 4682758-X (Version None)
Quarter: 2005Q2

REPORT INFORMATION
  Report Type: 
  Country: None (occurrence: None)
  Receive Date: 20050531
  Receipt Date: 20050202
  Transmission Date: 20051028
  Serious: Yes (Hospitalization)
  Sender: FDA-Public Use
  Company Number: 200418683US

PATIENT
  Sex: Female

DRUGS (1)
  1. LOVENOX [Suspect]

REACTIONS (1)
  - HAEMATOMA [None]
